FAERS Safety Report 16120951 (Version 4)
Quarter: 2019Q2

REPORT INFORMATION
  Report Type: Spontaneous
  Country: US (occurrence: US)
  Receive Date: 20190327
  Receipt Date: 20190410
  Transmission Date: 20190711
  Serious: Yes (Hospitalization)
  Sender: FDA-Public Use
  Company Number: US-UNITED THERAPEUTICS-UNT-2019-004342

PATIENT
  Age: 5 Year
  Sex: Male
  Weight: 17.69 kg

DRUGS (3)
  1. LETAIRIS [Concomitant]
     Active Substance: AMBRISENTAN
     Indication: PRODUCT USED FOR UNKNOWN INDICATION
     Dosage: UNK
     Route: 065
  2. REMODULIN [Suspect]
     Active Substance: TREPROSTINIL
     Dosage: UNK, CONTINUING
     Route: 058
  3. REMODULIN [Suspect]
     Active Substance: TREPROSTINIL
     Indication: PULMONARY ARTERIAL HYPERTENSION
     Dosage: 0.093 ?G/KG, CONTINUING
     Route: 058
     Dates: start: 20180413

REACTIONS (11)
  - Device deployment issue [Recovering/Resolving]
  - Infusion site joint infection [Recovering/Resolving]
  - Soft tissue disorder [Recovered/Resolved]
  - Infusion site discomfort [Recovered/Resolved]
  - Infusion site discharge [Recovered/Resolved]
  - Infusion site pain [Recovered/Resolved]
  - Atypical pneumonia [Unknown]
  - Upper respiratory tract infection [Recovered/Resolved]
  - Infusion site scab [Recovered/Resolved]
  - Limb discomfort [Recovered/Resolved]
  - Pain in extremity [Recovered/Resolved]

NARRATIVE: CASE EVENT DATE: 20190312
